FAERS Safety Report 6171029-0 (Version None)
Quarter: 2009Q2

REPORT INFORMATION
  Report Type: 
  Country: None (occurrence: None)
  Receive Date: 20090429
  Receipt Date: 20090423
  Transmission Date: 20091009
  Serious: No
  Sender: FDA-Public Use
  Company Number: US-JNJFOC-20090406341

PATIENT
  Sex: Female
  Weight: 47.63 kg

DRUGS (7)
  1. FENTANYL TRANSDERMAL SYSTEM [Suspect]
     Indication: SCIATICA
     Route: 062
  2. NEURONTIN [Concomitant]
     Indication: PAIN
     Route: 048
  3. HYDROCODONE BITARTRATE [Concomitant]
     Indication: BREAKTHROUGH PAIN
     Dosage: 7.5/700MG AS NEEDED
     Route: 048
  4. SOMA [Concomitant]
     Indication: MUSCLE SPASMS
     Route: 048
  5. CYMBALTA [Concomitant]
     Indication: PAIN
     Route: 048
  6. CYMBALTA [Concomitant]
     Indication: SLEEP DISORDER THERAPY
     Route: 048
  7. UNSPECIFIED MEDICATION [Concomitant]
     Indication: SCIATICA

REACTIONS (2)
  - INAPPROPRIATE SCHEDULE OF DRUG ADMINISTRATION [None]
  - WRONG TECHNIQUE IN DRUG USAGE PROCESS [None]
